FAERS Safety Report 25657704 (Version 2)
Quarter: 2025Q3

REPORT INFORMATION
  Report Type: Spontaneous
  Country: IN (occurrence: IN)
  Receive Date: 20250808
  Receipt Date: 20250826
  Transmission Date: 20251020
  Serious: Yes (Death, Hospitalization, Other)
  Sender: ASTELLAS
  Company Number: IN-ASTELLAS-2025-AER-043222

PATIENT
  Age: 61 Year
  Sex: Male

DRUGS (1)
  1. ISAVUCONAZOLE [Suspect]
     Active Substance: ISAVUCONAZOLE
     Indication: Product used for unknown indication
     Dosage: FORMULATION REPORTED AS ^CONCENTRATE FOR SOLUTION FOR INFUSION^
     Route: 050

REACTIONS (2)
  - Death [Fatal]
  - Coma [Unknown]
